FAERS Safety Report 7842665-8 (Version None)
Quarter: 2011Q4

REPORT INFORMATION
  Report Type: 
  Country: None (occurrence: None)
  Receive Date: 20111025
  Receipt Date: 20111019
  Transmission Date: 20120403
  Serious: Yes (Hospitalization)
  Sender: FDA-Public Use
  Company Number: FR-AMGEN-FRASP2011049764

PATIENT
  Age: 48 Year
  Sex: Female
  Weight: 48 kg

DRUGS (4)
  1. FLUOROURACIL [Concomitant]
     Dosage: 1100 MG, UNK
     Route: 042
     Dates: start: 20111010, end: 20111015
  2. NEULASTA [Suspect]
     Indication: NEUTROPENIA
     Dosage: 500 MUG, UNK
     Route: 058
     Dates: start: 20110924
  3. DOCETAXEL [Concomitant]
     Indication: NEOPLASM MALIGNANT
     Dosage: 110 MG, UNK
     Route: 042
     Dates: start: 20111010, end: 20111010
  4. CISPLATIN [Concomitant]
     Indication: NEOPLASM MALIGNANT
     Dosage: 110 MG, UNK
     Route: 042
     Dates: start: 20111010, end: 20111010

REACTIONS (1)
  - MEDICATION ERROR [None]
